FAERS Safety Report 4892376-6 (Version None)
Quarter: 2006Q1

REPORT INFORMATION
  Report Type: 
  Country: None (occurrence: None)
  Receive Date: 20060126
  Receipt Date: 20051003
  Transmission Date: 20060701
  Serious: Yes (Hospitalization)
  Sender: FDA-Public Use
  Company Number: US-MERCK-0510USA02577

PATIENT
  Age: 67 Year
  Sex: Female
  Weight: 82 kg

DRUGS (5)
  1. VIOXX [Suspect]
     Indication: ARTHRITIS
     Route: 048
     Dates: start: 20010515, end: 20031223
  2. INSULIN [Concomitant]
     Route: 058
  3. INSULIN [Concomitant]
     Route: 058
  4. MICARDIS [Concomitant]
     Route: 065
  5. ZOCOR [Concomitant]
     Route: 065

REACTIONS (7)
  - ARTHRALGIA [None]
  - BRADYCARDIA [None]
  - BRAIN NATRIURETIC PEPTIDE INCREASED [None]
  - CARDIAC FAILURE CONGESTIVE [None]
  - DYSPNOEA [None]
  - KNEE ARTHROPLASTY [None]
  - SICK SINUS SYNDROME [None]
